FAERS Safety Report 10754535 (Version 1)
Quarter: 2015Q1

REPORT INFORMATION
  Report Type: Spontaneous
  Country: US (occurrence: None)
  Receive Date: 20150130
  Receipt Date: 20150130
  Transmission Date: 20150721
  Serious: Yes (Other)
  Sender: FDA-Public Use
  Company Number: None

PATIENT
  Age: 12 Year
  Sex: Female
  Weight: 46.8 kg

DRUGS (11)
  1. CAYSTON [Suspect]
     Active Substance: AZTREONAM
     Indication: PSEUDOMONAS INFECTION
     Dosage: 1 AMPULE, TID, INHALED
     Route: 055
     Dates: start: 20150103, end: 20150124
  2. AZITHROMYCIN [Concomitant]
     Active Substance: AZITHROMYCIN ANHYDROUS
  3. LORATADINE. [Concomitant]
     Active Substance: LORATADINE
  4. MVW COMPLETE [Concomitant]
  5. HILL ROM VEST SYSTEM [Concomitant]
  6. CREON [Concomitant]
     Active Substance: PANCRELIPASE AMYLASE\PANCRELIPASE LIPASE\PANCRELIPASE PROTEASE
  7. MIRALAX [Concomitant]
     Active Substance: POLYETHYLENE GLYCOL 3350
  8. PULMOZYME [Concomitant]
     Active Substance: DORNASE ALFA
  9. VITAMIN D [Concomitant]
     Active Substance: CHOLECALCIFEROL
  10. HYPERTONIC SALINE SOLUTION [Concomitant]
     Active Substance: SODIUM CHLORIDE
  11. ALBUTEROL. [Concomitant]
     Active Substance: ALBUTEROL

REACTIONS (6)
  - Educational problem [None]
  - Suicidal ideation [None]
  - Mood swings [None]
  - Depression [None]
  - Self-injurious ideation [None]
  - Disturbance in attention [None]

NARRATIVE: CASE EVENT DATE: 20150123
